FAERS Safety Report 8337504 (Version 2)
Quarter: 2013Q1

REPORT INFORMATION
  Report Type: Spontaneous
  Country: BR (occurrence: BR)
  Receive Date: 20120116
  Receipt Date: 20130311
  Transmission Date: 20140127
  Serious: Yes (Other)
  Sender: FDA-Public Use
  Company Number: BR-AMGEN-BRACT2011069924

PATIENT
  Age: 41 Year
  Sex: Female
  Weight: 78 kg

DRUGS (12)
  1. ENBREL [Suspect]
     Indication: RHEUMATOID ARTHRITIS
     Dosage: 50 MG, WEEKLY (1X/WEEK)
     Route: 058
     Dates: start: 2007
  2. ENBREL [Suspect]
     Dosage: 50 MG, WEEKLY
     Route: 058
     Dates: start: 20110526
  3. ENBREL [Suspect]
     Dosage: 50 MG, UNK
     Dates: start: 201109
  4. METHOTREXATE [Concomitant]
     Indication: RHEUMATOID ARTHRITIS
     Dosage: 2.5 MG, QWK, 6 CP (NOT INFORMED IF CAPSULE OR TABLET) OF 2.5MG WEEKLY
     Dates: start: 2003
  5. FOLIC ACID [Concomitant]
     Indication: RHEUMATOID ARTHRITIS
     Dosage: 5 MG, QWK
     Dates: start: 2003
  6. CALCIUM [Concomitant]
     Dosage: UNK
  7. ATROPINE [Concomitant]
     Dosage: UNK
  8. LIPOSIC [Concomitant]
     Dosage: UNK
  9. LACRIBELL [Concomitant]
     Dosage: UNK
  10. LACRIMA PLUS [Concomitant]
     Dosage: UNK
  11. CORTICORTEN [Concomitant]
     Indication: RHEUMATOID ARTHRITIS
     Dosage: 5 MG, 1X/DAY
     Dates: start: 2003
  12. OPTIVE [Concomitant]
     Indication: EYE LUBRICATION THERAPY
     Dosage: 1 GTT, EVERY ONE HOUR
     Dates: start: 201207

REACTIONS (10)
  - Retinal detachment [Recovered/Resolved with Sequelae]
  - Blindness unilateral [Not Recovered/Not Resolved]
  - Glaucoma [Not Recovered/Not Resolved]
  - Dengue fever [Recovered/Resolved]
  - Visual acuity reduced [Not Recovered/Not Resolved]
  - Myopia [Unknown]
  - Injection site pruritus [Unknown]
  - Injection site swelling [Unknown]
  - Injection site pain [Unknown]
  - Mumps [Recovered/Resolved]
